FAERS Safety Report 8559908-8 (Version None)
Quarter: 2012Q3

REPORT INFORMATION
  Report Type: 
  Country: None (occurrence: None)
  Receive Date: 20120802
  Receipt Date: 20120730
  Transmission Date: 20120928
  Serious: Yes (Life-Threatening, Hospitalization)
  Sender: FDA-Public Use
  Company Number: PHHY2012AU045905

PATIENT
  Sex: Male

DRUGS (1)
  1. LAMISIL [Suspect]
     Indication: ONYCHOMYCOSIS
     Dosage: 250 MG, DAILY
     Route: 048
     Dates: start: 20120416, end: 20120426

REACTIONS (9)
  - ORAL MUCOSAL BLISTERING [None]
  - SKIN MASS [None]
  - INFLAMMATION [None]
  - ORAL PAIN [None]
  - ACNE [None]
  - FEELING ABNORMAL [None]
  - MALAISE [None]
  - NEUTROPENIA [None]
  - STAPHYLOCOCCAL INFECTION [None]
